FAERS Safety Report 10628774 (Version 2)
Quarter: 2014Q4

REPORT INFORMATION
  Report Type: Spontaneous
  Country: US (occurrence: US)
  Receive Date: 20141205
  Receipt Date: 20141205
  Transmission Date: 20150529
  Serious: No
  Sender: FDA-Public Use
  Company Number: US-BRISTOL-MYERS SQUIBB COMPANY-21302500

PATIENT
  Age: 77 Year
  Sex: Male
  Weight: 104.76 kg

DRUGS (15)
  1. BACTROBAN [Concomitant]
     Active Substance: MUPIROCIN\MUPIROCIN CALCIUM
  2. LYRICA [Suspect]
     Active Substance: PREGABALIN
     Indication: DIABETIC NEUROPATHY
  3. LASIX [Concomitant]
     Active Substance: FUROSEMIDE
  4. ATACAND [Concomitant]
     Active Substance: CANDESARTAN CILEXETIL
  5. LANOXIN [Concomitant]
     Active Substance: DIGOXIN
  6. DIGOXIN. [Concomitant]
     Active Substance: DIGOXIN
  7. ACTOS [Concomitant]
     Active Substance: PIOGLITAZONE HYDROCHLORIDE
  8. LISINOPRIL. [Concomitant]
     Active Substance: LISINOPRIL
  9. TRIAMCINOLONE [Concomitant]
     Active Substance: TRIAMCINOLONE
     Dosage: CREAM
  10. NOVOLOG [Concomitant]
     Active Substance: INSULIN ASPART
  11. COUMADINE [Suspect]
     Active Substance: WARFARIN SODIUM
  12. NORCO [Concomitant]
     Active Substance: ACETAMINOPHEN\HYDROCODONE BITARTRATE
  13. DILTIAZEM HCL [Concomitant]
     Active Substance: DILTIAZEM HYDROCHLORIDE
  14. SPIRONOLACTONE. [Concomitant]
     Active Substance: SPIRONOLACTONE
  15. CLARITIN [Concomitant]
     Active Substance: LORATADINE

REACTIONS (2)
  - Exfoliative rash [Unknown]
  - Pain in extremity [Unknown]
